FAERS Safety Report 10447310 (Version 1)
Quarter: 2014Q3

REPORT INFORMATION
  Report Type: Spontaneous
  Country: TR (occurrence: TR)
  Receive Date: 20140911
  Receipt Date: 20140911
  Transmission Date: 20150326
  Serious: Yes (Other)
  Sender: FDA-Public Use
  Company Number: TR-MYLAN-2014M1004194

PATIENT

DRUGS (1)
  1. AMLODIPINE BESILATE [Suspect]
     Active Substance: AMLODIPINE BESYLATE
     Indication: HYPERTENSION
     Dosage: 10MG
     Route: 065

REACTIONS (1)
  - Hepatotoxicity [Recovered/Resolved]
